FAERS Safety Report 10029566 (Version 1)
Quarter: 2014Q1

REPORT INFORMATION
  Report Type: Spontaneous
  Country: US (occurrence: None)
  Receive Date: 20140320
  Receipt Date: 20140320
  Transmission Date: 20141002
  Serious: Yes (Other)
  Sender: FDA-Public Use
  Company Number: None

PATIENT
  Age: 37 Year
  Sex: Female
  Weight: 85.28 kg

DRUGS (3)
  1. FENTANYL [Suspect]
     Indication: NERVE INJURY
     Dosage: 1 PATCH (3 TOTAL PATCHES) EVERY 72 HOURS APPLIED AS MEDICATED PATCH TO SKIN
     Dates: start: 20140119, end: 20140119
  2. FENTANYL [Suspect]
     Indication: PAIN IN EXTREMITY
     Dosage: 1 PATCH (3 TOTAL PATCHES) EVERY 72 HOURS APPLIED AS MEDICATED PATCH TO SKIN
     Dates: start: 20140119, end: 20140119
  3. FENTANYL [Suspect]
     Indication: MYALGIA
     Dosage: 1 PATCH (3 TOTAL PATCHES) EVERY 72 HOURS APPLIED AS MEDICATED PATCH TO SKIN
     Dates: start: 20140119, end: 20140119

REACTIONS (11)
  - Sedation [None]
  - Fall [None]
  - Pallor [None]
  - Cold sweat [None]
  - Dyspnoea [None]
  - Eye disorder [None]
  - Sedation [None]
  - Dysgraphia [None]
  - Visual impairment [None]
  - Speech disorder [None]
  - Drug effect increased [None]
